FAERS Safety Report 4865982-2 (Version None)
Quarter: 2005Q4

REPORT INFORMATION
  Report Type: 
  Country: None (occurrence: None)
  Receive Date: 20051226
  Receipt Date: 20051219
  Transmission Date: 20060501
  Serious: Yes (Hospitalization, Other)
  Sender: FDA-Public Use
  Company Number: US-AVENTIS-200520759US

PATIENT
  Age: 65 Year
  Sex: Female

DRUGS (4)
  1. LANTUS [Suspect]
     Indication: DIABETES MELLITUS NON-INSULIN-DEPENDENT
     Dosage: DOSE: STARTED WITH 10U AND TITRATED UP TO 50U CURRENTLY
     Dates: start: 20050529
  2. HYDROCHLOROTHIAZIDE [Concomitant]
     Dosage: DOSE: UNK
  3. ATIVAN [Concomitant]
     Dosage: DOSE: UNK
  4. COMPAZINE [Concomitant]
     Dosage: DOSE: UNK
     Route: 048

REACTIONS (6)
  - ASTHENIA [None]
  - BLOOD GLUCOSE INCREASED [None]
  - PYREXIA [None]
  - RED BLOOD CELL COUNT DECREASED [None]
  - SMALL CELL LUNG CANCER RECURRENT [None]
  - WHITE BLOOD CELL COUNT DECREASED [None]
